FAERS Safety Report 4449303-5 (Version None)
Quarter: 2004Q3

REPORT INFORMATION
  Report Type: 
  Country: None (occurrence: None)
  Receive Date: 20040913
  Receipt Date: 20040826
  Transmission Date: 20050211
  Serious: Yes (Death)
  Sender: FDA-Public Use
  Company Number: 430031M04USA

PATIENT
  Age: 56 Year
  Sex: Female

DRUGS (6)
  1. NOVANTRONE [Suspect]
     Indication: MULTIPLE SCLEROSIS
     Dosage: 1 IN 3 MONTHS
     Dates: start: 20030408, end: 20040716
  2. COPAXONE [Concomitant]
  3. ZOLOFT [Concomitant]
  4. MOBIC [Concomitant]
  5. ARAVA [Concomitant]
  6. ELAVIL [Concomitant]

REACTIONS (9)
  - BLOOD PRESSURE INCREASED [None]
  - DIARRHOEA [None]
  - DISSEMINATED INTRAVASCULAR COAGULATION [None]
  - HAEMATURIA [None]
  - HYPOTRICHOSIS [None]
  - INFECTION [None]
  - NAUSEA [None]
  - RESPIRATORY FAILURE [None]
  - VOMITING [None]
